FAERS Safety Report 15900833 (Version 3)
Quarter: 2019Q1

REPORT INFORMATION
  Report Type: Spontaneous
  Country: HK (occurrence: HK)
  Receive Date: 20190201
  Receipt Date: 20190316
  Transmission Date: 20190417
  Serious: Yes (Life-Threatening, Hospitalization, Other)
  Sender: FDA-Public Use
  Company Number: HK-ACCORD-103959

PATIENT
  Age: 65 Year
  Sex: Female

DRUGS (6)
  1. SULFAMETHOXAZOLE/TRIMETHOPRIM [Concomitant]
     Indication: PROPHYLAXIS
  2. FLUCONAZOLE. [Concomitant]
     Active Substance: FLUCONAZOLE
     Indication: PROPHYLAXIS
  3. ACICLOVIR [Concomitant]
     Active Substance: ACYCLOVIR
     Indication: PROPHYLAXIS
  4. PREDNISOLONE. [Interacting]
     Active Substance: PREDNISOLONE
     Indication: IMMUNOSUPPRESSION
     Dosage: GRADUALLY TAPERED TO 5 MG DAILY
  5. TACROLIMUS. [Suspect]
     Active Substance: TACROLIMUS
     Indication: IMMUNOSUPPRESSION
     Route: 048
  6. MYCOPHENOLIC ACID. [Interacting]
     Active Substance: MYCOPHENOLIC ACID
     Indication: IMMUNOSUPPRESSION

REACTIONS (11)
  - Drug interaction [Unknown]
  - Cytomegalovirus infection [Recovering/Resolving]
  - Enterovirus infection [Recovering/Resolving]
  - Pneumomediastinum [Recovered/Resolved]
  - Pneumocystis jirovecii pneumonia [Recovered/Resolved]
  - Respiratory syncytial virus infection [Recovering/Resolving]
  - Pneumothorax spontaneous [Recovered/Resolved]
  - Candida infection [Recovering/Resolving]
  - Subcutaneous emphysema [Recovered/Resolved]
  - Rhinovirus infection [Recovering/Resolving]
  - Pneumocystis jirovecii infection [Recovered/Resolved]
